FAERS Safety Report 5891785-6 (Version None)
Quarter: 2008Q3

REPORT INFORMATION
  Report Type: 
  Country: None (occurrence: None)
  Receive Date: 20080922
  Receipt Date: 20080910
  Transmission Date: 20090109
  Serious: No
  Sender: FDA-Public Use
  Company Number: US-ELI_LILLY_AND_COMPANY-US200809002282

PATIENT
  Sex: Female

DRUGS (2)
  1. CYMBALTA [Suspect]
     Dosage: 60 MG, UNK
     Dates: start: 20080401
  2. CYMBALTA [Suspect]
     Dosage: 30 MG, UNK

REACTIONS (15)
  - ABNORMAL DREAMS [None]
  - ALOPECIA [None]
  - BOWEL MOVEMENT IRREGULARITY [None]
  - CHROMATURIA [None]
  - CONTUSION [None]
  - DISTURBANCE IN ATTENTION [None]
  - DRY MOUTH [None]
  - EYE SWELLING [None]
  - FLATULENCE [None]
  - HEADACHE [None]
  - HOT FLUSH [None]
  - NAUSEA [None]
  - RESTLESS LEGS SYNDROME [None]
  - SOMNOLENCE [None]
  - VISION BLURRED [None]
